FAERS Safety Report 4514055-7 (Version None)
Quarter: 2004Q4

REPORT INFORMATION
  Report Type: 
  Country: None (occurrence: None)
  Receive Date: 20041130
  Receipt Date: 20040921
  Transmission Date: 20050328
  Serious: Yes (Other)
  Sender: FDA-Public Use
  Company Number: JP-GLAXOSMITHKLINE-B0346468A

PATIENT
  Sex: Male
  Weight: 3.4 kg

DRUGS (2)
  1. PAXIL [Suspect]
     Indication: AFFECTIVE DISORDER
     Dosage: 20MG PER DAY
     Dates: end: 20040920
  2. UTEMERIN [Concomitant]

REACTIONS (8)
  - CAESAREAN SECTION [None]
  - CRYING [None]
  - DEPRESSED LEVEL OF CONSCIOUSNESS [None]
  - DRUG EXPOSURE DURING PREGNANCY [None]
  - HYPOCALCAEMIA [None]
  - RESPIRATORY DEPRESSION [None]
  - SOMNOLENCE [None]
  - TREMOR [None]
